FAERS Safety Report 19241326 (Version 3)
Quarter: 2021Q3

REPORT INFORMATION
  Report Type: Report from Study
  Country: US (occurrence: US)
  Receive Date: 20210511
  Receipt Date: 20210728
  Transmission Date: 20211014
  Serious: Yes (Hospitalization)
  Sender: FDA-Public Use
  Company Number: US-ROCHE-2825767

PATIENT
  Age: 78 Year
  Sex: Male

DRUGS (22)
  1. PREDNISONE. [Suspect]
     Active Substance: PREDNISONE
     Indication: B-CELL LYMPHOMA REFRACTORY
     Dosage: DAYS 1?7
     Route: 048
     Dates: start: 20210423, end: 20210429
  2. NEULASTA [Concomitant]
     Active Substance: PEGFILGRASTIM
     Dates: start: 20210501
  3. MAGNESIUM [Concomitant]
     Active Substance: MAGNESIUM
     Dosage: 2 GR
     Route: 042
  4. LENALIDOMIDE [Suspect]
     Active Substance: LENALIDOMIDE
     Indication: B-CELL LYMPHOMA REFRACTORY
     Dosage: DAYS 1?14
     Route: 048
     Dates: start: 20210423, end: 20210505
  5. BACTRIM DS [Concomitant]
     Active Substance: SULFAMETHOXAZOLE\TRIMETHOPRIM
     Dates: start: 20210423
  6. POTASSIUM CHLORIDE. [Concomitant]
     Active Substance: POTASSIUM CHLORIDE
     Dosage: 20 MMEQ
     Route: 042
  7. IBRUTINIB [Suspect]
     Active Substance: IBRUTINIB
     Indication: B-CELL LYMPHOMA REFRACTORY
     Dosage: DAYS 1?28
     Route: 048
     Dates: start: 20210423, end: 20210505
  8. ALLOPURINOL. [Concomitant]
     Active Substance: ALLOPURINOL
  9. AMIODARONE [Concomitant]
     Active Substance: AMIODARONE
     Route: 042
  10. OBINUTUZUMAB. [Suspect]
     Active Substance: OBINUTUZUMAB
     Indication: B-CELL LYMPHOMA REFRACTORY
     Dosage: 4 HOURS ON DAYS 1, 2, 8, AND 15 OF CYCLE 1 AND ON DAY 1 OF CYCLES 2?6
     Route: 042
     Dates: start: 20210423, end: 20210424
  11. METOPROLOL TARTRATE. [Concomitant]
     Active Substance: METOPROLOL TARTRATE
  12. FINASTERIDE. [Concomitant]
     Active Substance: FINASTERIDE
     Dosage: DAILY
  13. LOVENOX [Concomitant]
     Active Substance: ENOXAPARIN SODIUM
     Dates: start: 20210422
  14. OLANZAPINE. [Concomitant]
     Active Substance: OLANZAPINE
     Route: 048
  15. ATORVASTATIN [Concomitant]
     Active Substance: ATORVASTATIN
  16. LEVOTHYROXINE. [Concomitant]
     Active Substance: LEVOTHYROXINE
     Dosage: 112 MCG
  17. ALFUZOSIN [Concomitant]
     Active Substance: ALFUZOSIN
     Route: 048
  18. HALDOL [Concomitant]
     Active Substance: HALOPERIDOL
     Route: 042
  19. VENETOCLAX. [Suspect]
     Active Substance: VENETOCLAX
     Indication: B-CELL LYMPHOMA REFRACTORY
     Dosage: DAYS 1?28 OF CYCLES 3?14
     Route: 048
     Dates: start: 20210424, end: 20210505
  20. METOPROLOL. [Concomitant]
     Active Substance: METOPROLOL
     Dates: start: 20210422
  21. METHYLPREDNISOLONE. [Concomitant]
     Active Substance: METHYLPREDNISOLONE
     Route: 042
     Dates: start: 20210518
  22. DIGOXIN. [Concomitant]
     Active Substance: DIGOXIN
     Route: 042

REACTIONS (2)
  - Atrial fibrillation [Unknown]
  - Dehydration [Recovered/Resolved]

NARRATIVE: CASE EVENT DATE: 20210504
